FAERS Safety Report 5099292-8 (Version None)
Quarter: 2006Q3

REPORT INFORMATION
  Report Type: 
  Country: None (occurrence: None)
  Receive Date: 20060731
  Receipt Date: 20050616
  Transmission Date: 20061208
  Serious: Yes (Other)
  Sender: FDA-Public Use
  Company Number: US-2004-034719

PATIENT
  Age: 42 Year
  Sex: Female
  Weight: 113.4 kg

DRUGS (1)
  1. MAGNEVIST [Suspect]
     Indication: NUCLEAR MAGNETIC RESONANCE IMAGING
     Dosage: 20 ML, 1 DOSE, INTRAVENOUS
     Route: 042
     Dates: start: 20041019, end: 20041019

REACTIONS (5)
  - DIARRHOEA [None]
  - DYSPNOEA [None]
  - FEELING HOT [None]
  - RASH [None]
  - VOMITING [None]
